FAERS Safety Report 20936165 (Version 1)
Quarter: 2022Q2

REPORT INFORMATION
  Report Type: Report from Study
  Country: AU (occurrence: AU)
  Receive Date: 20220609
  Receipt Date: 20220609
  Transmission Date: 20220720
  Serious: Yes (Death, Other)
  Sender: FDA-Public Use
  Company Number: AU-SUN PHARMACEUTICAL INDUSTRIES LTD-2022RR-340101

PATIENT
  Age: 45 Year
  Sex: Male

DRUGS (6)
  1. MORPHINE [Suspect]
     Active Substance: MORPHINE
     Indication: Wrist surgery
     Dosage: 2 MILLIGRAM, 1DOSE/1HOUR, WITH 10 MINUTELY 2 MG PRN PCA
     Route: 065
  2. MORPHINE [Suspect]
     Active Substance: MORPHINE
     Dosage: 10 MILLIGRAM INTRA-OP
     Route: 042
  3. MORPHINE [Suspect]
     Active Substance: MORPHINE
     Dosage: 25 MILLIGRAM IN RECOVERY
     Route: 042
  4. FENTANYL [Suspect]
     Active Substance: FENTANYL
     Indication: Wrist surgery
     Dosage: 110 MICROGRAM INTRA-OP
     Route: 042
  5. TEMAZEPAM [Suspect]
     Active Substance: TEMAZEPAM
     Indication: Wrist surgery
     Dosage: 20 MILLIGRAM, UNK
     Route: 065
  6. PROMETHAZINE [Suspect]
     Active Substance: PROMETHAZINE HYDROCHLORIDE
     Indication: Wrist surgery
     Dosage: 30 MILLIGRAM, UNK
     Route: 065

REACTIONS (1)
  - Toxicity to various agents [Fatal]
